FAERS Safety Report 9032029 (Version 1)
Quarter: 2013Q1

REPORT INFORMATION
  Report Type: Spontaneous
  Country: SE (occurrence: SE)
  Receive Date: 20130125
  Receipt Date: 20130125
  Transmission Date: 20140127
  Serious: Yes (Other)
  Sender: FDA-Public Use
  Company Number: SE-NOVOPROD-369386

PATIENT
  Age: 69 Year
  Sex: Male

DRUGS (4)
  1. NOVONORM [Suspect]
     Indication: PRODUCT USED FOR UNKNOWN INDICATION
     Route: 065
  2. NOVONORM [Suspect]
     Route: 065
  3. ZYTIGA [Suspect]
     Indication: PROSTATE CANCER METASTATIC
     Dosage: UNK
     Route: 065
     Dates: start: 20110926
  4. ZYTIGA [Suspect]
     Dosage: UNK
     Route: 065
     Dates: end: 20121107

REACTIONS (1)
  - Transaminases increased [Recovered/Resolved]
